FAERS Safety Report 13577622 (Version 4)
Quarter: 2019Q2

REPORT INFORMATION
  Report Type: Spontaneous
  Country: CO (occurrence: CO)
  Receive Date: 20170524
  Receipt Date: 20190404
  Transmission Date: 20190711
  Serious: Yes (Hospitalization, Disabling, Other)
  Sender: FDA-Public Use
  Company Number: CO-PFIZER INC-2017181206

PATIENT
  Age: 15 Year
  Sex: Male

DRUGS (6)
  1. GENOTROPIN [Suspect]
     Active Substance: SOMATROPIN
     Indication: GROWTH HORMONE DEFICIENCY
     Dosage: UNK
     Dates: start: 2013
  2. MYCOPHENOLATE [Concomitant]
     Active Substance: MYCOPHENOLIC ACID
  3. PREDNISOLONE. [Concomitant]
     Active Substance: PREDNISOLONE
  4. GENOTROPIN [Suspect]
     Active Substance: SOMATROPIN
     Indication: BLOOD GROWTH HORMONE ABNORMAL
     Dosage: 1.8 MG, DAILY
     Route: 058
     Dates: start: 2014
  5. CYCLOSPORINE. [Concomitant]
     Active Substance: CYCLOSPORINE
  6. CALCIUM [Concomitant]
     Active Substance: CALCIUM

REACTIONS (6)
  - Renal disorder [Recovered/Resolved]
  - Condition aggravated [Recovered/Resolved]
  - Varicella [Recovered/Resolved]
  - Hepatitis [Recovered/Resolved]
  - Renal disorder [Unknown]
  - Nephrotic syndrome [Recovered/Resolved]

NARRATIVE: CASE EVENT DATE: 201612
